FAERS Safety Report 16045718 (Version 1)
Quarter: 2019Q2

REPORT INFORMATION
  Report Type: Spontaneous
  Country: US (occurrence: US)
  Receive Date: 20190306
  Receipt Date: 20190306
  Transmission Date: 20190711
  Serious: No
  Sender: FDA-Public Use
  Company Number: None

PATIENT
  Sex: Male

DRUGS (1)
  1. ALBUTEROL .83% NEB SOLUTION [Suspect]
     Active Substance: ALBUTEROL

REACTIONS (1)
  - Heart rate increased [None]
